FAERS Safety Report 21010673 (Version 1)
Quarter: 2022Q2

REPORT INFORMATION
  Report Type: Spontaneous
  Country: US (occurrence: None)
  Receive Date: 20220624
  Receipt Date: 20220624
  Transmission Date: 20220720
  Serious: Yes (Hospitalization)
  Sender: FDA-Public Use
  Company Number: None

PATIENT
  Sex: Female
  Weight: 73.5 kg

DRUGS (9)
  1. CAPECITABINE [Suspect]
     Active Substance: CAPECITABINE
  2. METOPROLOL SUCCINATE [Concomitant]
  3. ASPIRIN [Concomitant]
  4. MULTIVITAMIN [Concomitant]
  5. PRAVASTATIN SODIUM [Concomitant]
  6. METHYLPREDNISOLONE [Concomitant]
  7. GABAPENTIN [Concomitant]
  8. LOSARTRAN POTASSIUM [Concomitant]
  9. LIDOCAINE-PRILOCAINE [Concomitant]

REACTIONS (2)
  - Toxicity to various agents [None]
  - Therapy interrupted [None]
